FAERS Safety Report 8518682-1 (Version None)
Quarter: 2012Q3

REPORT INFORMATION
  Report Type: 
  Country: None (occurrence: None)
  Receive Date: 20120718
  Receipt Date: 20110627
  Transmission Date: 20120928
  Serious: No
  Sender: FDA-Public Use
  Company Number: US-BRISTOL-MYERS SQUIBB COMPANY-15806516

PATIENT
  Age: 72 Year
  Sex: Male
  Weight: 94 kg

DRUGS (6)
  1. METFORMIN HYDROCHLORIDE [Concomitant]
     Indication: ATRIAL FIBRILLATION
     Dosage: STARTED 8MONTHS AGO
  2. MULTAQ [Concomitant]
     Indication: ATRIAL FIBRILLATION
     Dosage: STARTED 8MONTHS AGO
  3. MULTAQ [Concomitant]
     Indication: ATRIAL FLUTTER
     Dosage: STARTED 8MONTHS AGO
  4. COUMADIN [Suspect]
     Indication: ATRIAL FIBRILLATION
     Dosage: DOSE INCREASED FROM 5MG TO 5.5MG STARTED 8MONTHS AGO
  5. COUMADIN [Suspect]
     Indication: ATRIAL FLUTTER
     Dosage: DOSE INCREASED FROM 5MG TO 5.5MG STARTED 8MONTHS AGO
  6. METFORMIN HYDROCHLORIDE [Concomitant]
     Indication: ATRIAL FLUTTER
     Dosage: STARTED 8MONTHS AGO

REACTIONS (2)
  - DRY SKIN [None]
  - SKIN FISSURES [None]
